FAERS Safety Report 8197169-2 (Version None)
Quarter: 2012Q1

REPORT INFORMATION
  Report Type: 
  Country: None (occurrence: None)
  Receive Date: 20120309
  Receipt Date: 20120306
  Transmission Date: 20120608
  Serious: Yes (Death, Other)
  Sender: FDA-Public Use
  Company Number: US-CELGENEUS-163-21880-12010057

PATIENT
  Sex: Male

DRUGS (6)
  1. REVLIMID [Suspect]
     Dosage: 10 MILLIGRAM
     Route: 048
     Dates: start: 20110901, end: 20111201
  2. REVLIMID [Suspect]
     Dosage: 10 MILLIGRAM
     Route: 048
     Dates: start: 20111201
  3. VITAMIN D [Concomitant]
     Dosage: 1000 IU (INTERNATIONAL UNIT)
     Route: 065
  4. IRON [Concomitant]
     Route: 065
  5. LISINOPRIL [Concomitant]
     Indication: HYPERTENSION
     Dosage: 20 MILLIGRAM
     Route: 065
  6. VITAMIN B-12 [Concomitant]
     Dosage: 1000 MICROGRAM
     Route: 065

REACTIONS (3)
  - DEATH [None]
  - NEUTROPHIL COUNT DECREASED [None]
  - CHEST WALL ABSCESS [None]
